FAERS Safety Report 18372117 (Version 1)
Quarter: 2020Q4

REPORT INFORMATION
  Report Type: Spontaneous
  Country: US (occurrence: US)
  Receive Date: 20201012
  Receipt Date: 20201012
  Transmission Date: 20210114
  Serious: No
  Sender: FDA-Public Use
  Company Number: US-009507513-2010USA003166

PATIENT
  Age: 35 Year
  Sex: Female

DRUGS (1)
  1. CUBICIN [Suspect]
     Active Substance: DAPTOMYCIN
     Indication: MASTITIS BACTERIAL
     Dosage: 200 MILLIGRAM, ONCE
     Route: 042

REACTIONS (1)
  - Maternal exposure during breast feeding [Unknown]
